FAERS Safety Report 19290730 (Version 1)
Quarter: 2021Q2

REPORT INFORMATION
  Report Type: Report from Study
  Country: None (occurrence: CA)
  Receive Date: 20210521
  Receipt Date: 20210521
  Transmission Date: 20210717
  Serious: Yes (Other)
  Sender: FDA-Public Use
  Company Number: CA-ABBVIE-21K-028-3865605-00

PATIENT
  Sex: Female

DRUGS (4)
  1. COVID?19 VACCINE NOS. [Concomitant]
     Active Substance: COVID-19 VACCINE NOS
     Indication: COVID-19 IMMUNISATION
     Dates: start: 20210420, end: 20210420
  2. RINVOQ [Suspect]
     Active Substance: UPADACITINIB
     Indication: RHEUMATOID ARTHRITIS
     Route: 048
     Dates: start: 20210311, end: 20210420
  3. RINVOQ [Suspect]
     Active Substance: UPADACITINIB
     Route: 048
     Dates: start: 20210426, end: 20210517
  4. SIMPONI [Concomitant]
     Active Substance: GOLIMUMAB
     Indication: PRODUCT USED FOR UNKNOWN INDICATION
     Dates: start: 2015

REACTIONS (6)
  - Back pain [Not Recovered/Not Resolved]
  - Joint range of motion decreased [Unknown]
  - Pain [Not Recovered/Not Resolved]
  - Mobility decreased [Not Recovered/Not Resolved]
  - Thoracic vertebral fracture [Not Recovered/Not Resolved]
  - Urinary tract infection [Unknown]

NARRATIVE: CASE EVENT DATE: 2021
